FAERS Safety Report 4474053-9 (Version None)
Quarter: 2004Q4

REPORT INFORMATION
  Report Type: 
  Country: None (occurrence: None)
  Receive Date: 20041008
  Receipt Date: 20040916
  Transmission Date: 20050328
  Serious: Yes (Other)
  Sender: FDA-Public Use
  Company Number: USA030537844

PATIENT
  Age: 66 Year
  Sex: Female
  Weight: 85 kg

DRUGS (6)
  1. HUMULIN R [Suspect]
     Indication: DIABETES MELLITUS
     Dosage: 12 U DAY
     Dates: start: 19960101
  2. HUMULIN N [Suspect]
     Indication: DIABETES MELLITUS
     Dosage: 35 U DAY
     Dates: start: 19960101
  3. GLYBURIDE [Concomitant]
  4. DILTIAZEM [Concomitant]
  5. FUROSEMIDE [Concomitant]
  6. LOTENSIN (BENAZEPRIL HYDROHCLORIDE) [Concomitant]

REACTIONS (10)
  - BLOOD GLUCOSE FLUCTUATION [None]
  - DIABETES MELLITUS INADEQUATE CONTROL [None]
  - FLUID RETENTION [None]
  - GLYCOSYLATED HAEMOGLOBIN INCREASED [None]
  - HYPERTENSION [None]
  - PERITONEAL DIALYSIS [None]
  - PHARMACEUTICAL PRODUCT COMPLAINT [None]
  - RENAL DISORDER [None]
  - RENAL FAILURE [None]
  - URINE OUTPUT DECREASED [None]
